FAERS Safety Report 15074989 (Version 2)
Quarter: 2023Q4

REPORT INFORMATION
  Report Type: Spontaneous
  Country: US (occurrence: US)
  Receive Date: 20180627
  Receipt Date: 20231128
  Transmission Date: 20240109
  Serious: Yes (Other)
  Sender: FDA-Public Use
  Company Number: US-SAOL THERAPEUTICS-2017SAO01762

PATIENT
  Age: 56 Year
  Sex: Male

DRUGS (7)
  1. BACLOFEN [Suspect]
     Active Substance: BACLOFEN
     Indication: Muscle spasticity
     Dosage: 300 ?G, \DAY
     Route: 037
  2. BACLOFEN [Suspect]
     Active Substance: BACLOFEN
     Dosage: 395.5 ?G, \DAY
     Route: 037
     Dates: start: 20170718
  3. BACLOFEN [Suspect]
     Active Substance: BACLOFEN
     Dosage: 395.7 ?G, \DAY
     Route: 037
     Dates: start: 20171107
  4. BUPIVACAINE [Suspect]
     Active Substance: BUPIVACAINE
     Dosage: 9.887 MG, \DAY
     Route: 037
     Dates: start: 20170901
  5. BUPIVACAINE [Suspect]
     Active Substance: BUPIVACAINE
     Dosage: 9.894 MG, \DAY
     Route: 037
     Dates: start: 20171107
  6. MORPHINE [Suspect]
     Active Substance: MORPHINE
     Dosage: 0.5537 MG, \DAY
     Route: 037
     Dates: start: 20170718
  7. MORPHINE [Suspect]
     Active Substance: MORPHINE
     Dosage: 0.5540 MG, \DAY
     Route: 037
     Dates: start: 20171107

REACTIONS (4)
  - Drug withdrawal syndrome [Unknown]
  - Pneumonia [Unknown]
  - Device failure [Recovered/Resolved]
  - Device information output issue [Recovered/Resolved]

NARRATIVE: CASE EVENT DATE: 20171106
